FAERS Safety Report 10007318 (Version 1)
Quarter: 2014Q1

REPORT INFORMATION
  Report Type: Spontaneous
  Country: US (occurrence: None)
  Receive Date: 20140312
  Receipt Date: 20140312
  Transmission Date: 20141002
  Serious: No
  Sender: FDA-Public Use
  Company Number: None

PATIENT
  Age: 65 Year
  Sex: Male

DRUGS (1)
  1. NEXAVAR [Suspect]
     Dosage: 2 TABS, 200 MG BID PO
     Route: 048
     Dates: start: 20140221, end: 20140305

REACTIONS (1)
  - Pruritus generalised [None]
